FAERS Safety Report 9000660 (Version 3)
Quarter: 2013Q4

REPORT INFORMATION
  Report Type: Spontaneous
  Country: US (occurrence: US)
  Receive Date: 20130107
  Receipt Date: 20131213
  Transmission Date: 20140711
  Serious: Yes (Other)
  Sender: FDA-Public Use
  Company Number: US-PFIZER INC-2013003649

PATIENT
  Age: 64 Year
  Sex: Female
  Weight: 136.5 kg

DRUGS (12)
  1. LYRICA [Suspect]
     Indication: DIABETIC NEUROPATHY
     Dosage: 25 MG, 3X/DAY
     Route: 048
     Dates: start: 2007
  2. LYRICA [Suspect]
     Dosage: 50 MG, 3X/DAY
  3. LYRICA [Suspect]
     Dosage: 75 MG, 3X/DAY
  4. POTASSIUM [Concomitant]
     Indication: MUSCLE SPASMS
     Dosage: UNK
  5. METFORMIN [Concomitant]
     Indication: DIABETES MELLITUS
     Dosage: UNK
  6. GLIMEPIRIDE [Concomitant]
     Indication: DIABETES MELLITUS
     Dosage: UNK
  7. MULTIVITAMINS [Concomitant]
     Dosage: UNK
  8. LEVOTHYROXINE [Concomitant]
     Indication: THYROID DISORDER
     Dosage: UNK
  9. CALCIUM CITRATE [Concomitant]
     Indication: VITAMIN D DEFICIENCY
     Dosage: UNK
  10. LESCOL [Concomitant]
     Dosage: UNK
  11. AVAPRO [Concomitant]
     Indication: PROPHYLAXIS
     Dosage: UNK
  12. ASPIRIN [Concomitant]
     Indication: CARDIOVASCULAR EVENT PROPHYLAXIS
     Dosage: 81 MG, UNK

REACTIONS (4)
  - Sinusitis [Recovered/Resolved]
  - Nasopharyngitis [Recovered/Resolved]
  - Upper respiratory tract congestion [Recovered/Resolved]
  - Drug effect incomplete [Unknown]
